FAERS Safety Report 6198412-1 (Version None)
Quarter: 2009Q2

REPORT INFORMATION
  Report Type: 
  Country: None (occurrence: None)
  Receive Date: 20090521
  Receipt Date: 20090518
  Transmission Date: 20091009
  Serious: Yes (Hospitalization)
  Sender: FDA-Public Use
  Company Number: DE-ABBOTT-09P-062-0574232-00

PATIENT
  Sex: Female

DRUGS (6)
  1. HUMIRA [Suspect]
     Indication: LYMPHOMATOID PAPULOSIS
     Dates: start: 20060301, end: 20070501
  2. HUMIRA [Suspect]
     Indication: VASCULITIS
  3. METHOTREXATE SODIUM [Concomitant]
     Indication: DRUG USE FOR UNKNOWN INDICATION
  4. STEROIDS [Concomitant]
     Indication: DRUG USE FOR UNKNOWN INDICATION
  5. CHEMOTHERAPY [Concomitant]
     Indication: DRUG USE FOR UNKNOWN INDICATION
  6. CHEMOTHERAPY [Concomitant]

REACTIONS (2)
  - BLOOD URIC ACID INCREASED [None]
  - BONE PAIN [None]
